FAERS Safety Report 9408495 (Version 2)
Quarter: 2013Q3

REPORT INFORMATION
  Report Type: Spontaneous
  Country: US (occurrence: US)
  Receive Date: 20130718
  Receipt Date: 20130730
  Transmission Date: 20140515
  Serious: No
  Sender: FDA-Public Use
  Company Number: US-SUCAMPO PHARMA AMERICAS, INC-SPI201300519

PATIENT
  Age: 66 Year
  Sex: Female
  Weight: 68.03 kg

DRUGS (17)
  1. AMITIZA [Suspect]
     Indication: CONSTIPATION
     Dosage: 24 MCG, BID
     Route: 048
     Dates: start: 20130709, end: 20130711
  2. OXYGEN [Concomitant]
     Indication: OXYGEN SATURATION DECREASED
     Dosage: UNK, PRN
  3. LASIX [Concomitant]
     Indication: JOINT SWELLING
     Dosage: UNK
     Route: 048
  4. LEVOTHYROXINE [Concomitant]
     Indication: HYPOTHYROIDISM
     Dosage: UNK
     Route: 048
  5. PERCOCET [Concomitant]
     Indication: BACK PAIN
     Dosage: UNK
     Route: 048
  6. PERCOCET [Concomitant]
     Indication: ARTHRALGIA
  7. PERCOCET [Concomitant]
     Indication: ARTHRALGIA
  8. MORPHINE [Concomitant]
     Indication: BACK PAIN
     Dosage: UNK
     Route: 048
  9. MORPHINE [Concomitant]
     Indication: ARTHRALGIA
  10. MORPHINE [Concomitant]
     Indication: ARTHRALGIA
  11. WARFARIN [Concomitant]
     Indication: PULMONARY EMBOLISM
     Dosage: 2.5 MG QD 5 TIMES WEEKLY AND 5 MG QD 2 TIMES WEEKLY
     Route: 048
  12. RANITIDINE [Concomitant]
     Indication: GASTROOESOPHAGEAL REFLUX DISEASE
     Dosage: UNK
     Route: 048
  13. METOPROLOL [Concomitant]
     Indication: HYPERTENSION
     Dosage: 25 MG, QD
     Route: 048
  14. ADVAIR [Concomitant]
     Indication: DYSPNOEA
     Dosage: UNK
     Route: 048
  15. ADVAIR [Concomitant]
     Indication: PULMONARY HYPERTENSION
  16. SPIRIVA [Concomitant]
     Indication: DYSPNOEA
     Dosage: UNK
     Route: 048
  17. SPIRIVA [Concomitant]
     Indication: PULMONARY HYPERTENSION

REACTIONS (5)
  - Swollen tongue [Recovered/Resolved]
  - Malaise [Recovered/Resolved]
  - Abdominal distension [Recovered/Resolved]
  - Dyspnoea [Recovered/Resolved]
  - Local swelling [Recovered/Resolved]
